FAERS Safety Report 13616384 (Version 1)
Quarter: 2017Q2

REPORT INFORMATION
  Report Type: Spontaneous
  Country: US (occurrence: US)
  Receive Date: 20170606
  Receipt Date: 20170606
  Transmission Date: 20170830
  Serious: Yes (Other)
  Sender: FDA-Public Use
  Company Number: None

PATIENT
  Age: 47 Year
  Sex: Female
  Weight: 72.9 kg

DRUGS (12)
  1. NIFEDIPINE. [Suspect]
     Active Substance: NIFEDIPINE
     Indication: RAYNAUD^S PHENOMENON
     Dosage: ?          QUANTITY:1 TABLET(S);?
     Route: 048
     Dates: start: 20150601, end: 20160101
  2. LUTEIN [Concomitant]
     Active Substance: LUTEIN
  3. B-12 STRESS FORMULA [Concomitant]
  4. VITAMIN C [Concomitant]
     Active Substance: ASCORBIC ACID
  5. ASPIRIN. [Concomitant]
     Active Substance: ASPIRIN
  6. ABSORABLE VITAMIN D/WITH CALCIUM [Concomitant]
  7. FISH OIL [Concomitant]
     Active Substance: FISH OIL
  8. NASONEX [Concomitant]
     Active Substance: MOMETASONE FUROATE
  9. OMPERAZOLE [Concomitant]
     Active Substance: OMEPRAZOLE
  10. ALLERGY SHOTS [Concomitant]
     Active Substance: UNSPECIFIED INGREDIENT
  11. ZYRTEC-D ALLERGY AND CONGESTION [Concomitant]
     Active Substance: CETIRIZINE HYDROCHLORIDE\PSEUDOEPHEDRINE HYDROCHLORIDE
  12. NIACIN. [Concomitant]
     Active Substance: NIACIN

REACTIONS (2)
  - Muscle atrophy [None]
  - Muscular weakness [None]
